FAERS Safety Report 6827840-3 (Version None)
Quarter: 2010Q3

REPORT INFORMATION
  Report Type: 
  Country: None (occurrence: None)
  Receive Date: 20100709
  Receipt Date: 20100621
  Transmission Date: 20110219
  Serious: Yes (Death)
  Sender: FDA-Public Use
  Company Number: A0700818A

PATIENT
  Age: 49 Year
  Sex: Male
  Weight: 108.2 kg

DRUGS (7)
  1. AVANDIA [Suspect]
     Dosage: 8MG PER DAY
     Route: 048
     Dates: start: 20050823, end: 20061121
  2. LISINOPRIL AND HYDROCHLOROTHIAZIDE [Concomitant]
     Dates: start: 20050427, end: 20061121
  3. LIPITOR [Concomitant]
     Dates: start: 20010501, end: 20061121
  4. METFORMIN HCL [Concomitant]
     Dates: end: 20061121
  5. AMARYL [Concomitant]
     Dates: start: 20061012, end: 20061021
  6. LEVITRA [Concomitant]
     Dates: start: 20060322
  7. CIALIS [Concomitant]
     Dates: start: 20060322

REACTIONS (4)
  - ARTERIOSCLEROSIS [None]
  - CORONARY ARTERY DISEASE [None]
  - CORONARY ARTERY THROMBOSIS [None]
  - MYOCARDIAL INFARCTION [None]
